FAERS Safety Report 16038693 (Version 1)
Quarter: 2019Q1

REPORT INFORMATION
  Report Type: Spontaneous
  Country: US (occurrence: US)
  Receive Date: 20190305
  Receipt Date: 20190305
  Transmission Date: 20190418
  Serious: No
  Sender: FDA-Public Use
  Company Number: US-AMGEN-USASP2019034285

PATIENT
  Sex: Male

DRUGS (1)
  1. NEULASTA [Suspect]
     Active Substance: PEGFILGRASTIM
     Indication: FULL BLOOD COUNT DECREASED
     Dosage: UNK
     Route: 065
     Dates: start: 20190226

REACTIONS (3)
  - Application site mass [Unknown]
  - Hernia [Unknown]
  - Application site pain [Unknown]

NARRATIVE: CASE EVENT DATE: 201902
